FAERS Safety Report 4620487-9 (Version None)
Quarter: 2005Q1

REPORT INFORMATION
  Report Type: 
  Country: None (occurrence: None)
  Receive Date: 20050324
  Receipt Date: 20050311
  Transmission Date: 20050727
  Serious: Yes (Other)
  Sender: FDA-Public Use
  Company Number: 2005-0008147

PATIENT
  Age: 52 Year
  Sex: Male
  Weight: 71.2147 kg

DRUGS (2)
  1. TRUVADA [Suspect]
     Indication: HIV INFECTION
     Dosage: ORAL
     Route: 048
     Dates: start: 20041201
  2. SUSTIVA [Concomitant]

REACTIONS (2)
  - HYPERTENSION [None]
  - RENAL FAILURE [None]
